FAERS Safety Report 5459659-2 (Version None)
Quarter: 2007Q3

REPORT INFORMATION
  Report Type: 
  Country: None (occurrence: None)
  Receive Date: 20070813
  Receipt Date: 20070419
  Transmission Date: 20080115
  Serious: No
  Sender: FDA-Public Use
  Company Number: 20073640

PATIENT
  Sex: Male

DRUGS (6)
  1. LIORESAL [Suspect]
     Indication: MUSCLE SPASTICITY
     Dosage: 381 MCG, DAILY, INTRATHECAL
     Route: 037
  2. DEMEROL [Concomitant]
  3. SOMA [Concomitant]
  4. TEMAZEPAM [Concomitant]
  5. ALTACE [Concomitant]
  6. LIPITOR [Concomitant]

REACTIONS (3)
  - DRUG INEFFECTIVE [None]
  - HYPERTONIA [None]
  - PAIN [None]
